FAERS Safety Report 21034651 (Version 1)
Quarter: 2022Q3

REPORT INFORMATION
  Report Type: Spontaneous
  Country: US (occurrence: US)
  Receive Date: 20220701
  Receipt Date: 20220701
  Transmission Date: 20221027
  Serious: Yes (Other)
  Sender: FDA-Public Use
  Company Number: US-BRISTOL-MYERS SQUIBB COMPANY-2022-060428

PATIENT
  Sex: Female

DRUGS (4)
  1. SPRYCEL [Suspect]
     Active Substance: DASATINIB
     Indication: Product used for unknown indication
     Route: 065
  2. GLEEVEC [Suspect]
     Active Substance: IMATINIB MESYLATE
     Indication: Product used for unknown indication
     Route: 065
  3. TASIGNA [Suspect]
     Active Substance: NILOTINIB
     Indication: Product used for unknown indication
     Route: 065
  4. BOSULIF [Suspect]
     Active Substance: BOSUTINIB MONOHYDRATE
     Indication: Product used for unknown indication
     Route: 065

REACTIONS (3)
  - Pancreatitis chronic [Unknown]
  - Diabetes mellitus [Unknown]
  - Hernia [Unknown]
